FAERS Safety Report 4987284-6 (Version None)
Quarter: 2006Q2

REPORT INFORMATION
  Report Type: 
  Country: None (occurrence: None)
  Receive Date: 20060501
  Receipt Date: 20051207
  Transmission Date: 20061013
  Serious: Yes (Death, Hospitalization)
  Sender: FDA-Public Use
  Company Number: US-MERCK-0512USA01400

PATIENT
  Age: 83 Year
  Sex: Female
  Weight: 84 kg

DRUGS (6)
  1. DIGITEK [Concomitant]
     Route: 065
  2. NORFLEX [Concomitant]
     Route: 065
  3. COZAAR [Concomitant]
     Route: 065
  4. NORVASC [Concomitant]
     Route: 065
     Dates: end: 20020801
  5. VIOXX [Suspect]
     Indication: ARTHRITIS
     Route: 048
     Dates: start: 20000101, end: 20020926
  6. NITRO-DUR [Concomitant]
     Route: 065

REACTIONS (23)
  - ANAEMIA [None]
  - ANGINA UNSTABLE [None]
  - ARRHYTHMIA [None]
  - ARTERIOSCLEROSIS [None]
  - ASTHENIA [None]
  - BLOOD PRESSURE SYSTOLIC INCREASED [None]
  - CARDIAC ARREST [None]
  - CARDIAC FAILURE CONGESTIVE [None]
  - CARDIAC MURMUR [None]
  - CARDIOMYOPATHY [None]
  - CHEST PAIN [None]
  - COAGULATION TIME PROLONGED [None]
  - CONSTIPATION [None]
  - CORONARY ARTERY DISEASE [None]
  - FALL [None]
  - GASTROINTESTINAL HAEMORRHAGE [None]
  - HYPOGLYCAEMIA [None]
  - HYPOTENSION [None]
  - INTERNATIONAL NORMALISED RATIO INCREASED [None]
  - INTESTINAL OBSTRUCTION [None]
  - RENAL FAILURE [None]
  - RESPIRATORY ARREST [None]
  - THERAPEUTIC AGENT TOXICITY [None]
